FAERS Safety Report 4840456-3 (Version None)
Quarter: 2005Q4

REPORT INFORMATION
  Report Type: 
  Country: None (occurrence: None)
  Receive Date: 20051129
  Receipt Date: 20051129
  Transmission Date: 20060501
  Serious: No
  Sender: FDA-Public Use
  Company Number: None

PATIENT
  Age: 18 Year
  Sex: Male
  Weight: 65.7716 kg

DRUGS (2)
  1. ACCUTANE [Suspect]
     Indication: ACNE
     Dosage: 40MG  BID PO
     Route: 048
     Dates: start: 20040101, end: 20040601
  2. ACCUTANE [Suspect]
     Indication: ACNE
     Dosage: 40MG  BID PO
     Route: 048
     Dates: start: 20050201, end: 20050701

REACTIONS (1)
  - HYPOTRICHOSIS [None]
